FAERS Safety Report 24041995 (Version 1)
Quarter: 2024Q3

REPORT INFORMATION
  Report Type: Spontaneous
  Country: TN (occurrence: TN)
  Receive Date: 20240702
  Receipt Date: 20240702
  Transmission Date: 20241016
  Serious: Yes (Other)
  Sender: PERRIGO
  Company Number: TN-PERRIGO-24TN006060

PATIENT
  Age: 50 Year
  Sex: Female

DRUGS (2)
  1. IBUPROFEN [Suspect]
     Active Substance: IBUPROFEN
     Indication: Product used for unknown indication
     Dosage: UNKNOWN, UNKNOWN
     Route: 048
  2. ACETAMINOPHEN [Suspect]
     Active Substance: ACETAMINOPHEN
     Indication: Drug provocation test
     Dosage: 100 MG, UNKNOWN
     Route: 048

REACTIONS (1)
  - NSAID exacerbated respiratory disease [Unknown]
